FAERS Safety Report 14208756 (Version 2)
Quarter: 2018Q2

REPORT INFORMATION
  Report Type: Spontaneous
  Country: US (occurrence: US)
  Receive Date: 20171121
  Receipt Date: 20180506
  Transmission Date: 20180711
  Serious: Yes (Hospitalization, Other)
  Sender: FDA-Public Use
  Company Number: US-JNJFOC-20171029977

PATIENT
  Age: 37 Year
  Sex: Female

DRUGS (8)
  1. XARELTO [Suspect]
     Active Substance: RIVAROXABAN
     Indication: DEEP VEIN THROMBOSIS
     Dosage: DOSAGE VARYING FROM 15 AND 20MG
     Route: 048
     Dates: start: 2015, end: 20151016
  2. XARELTO [Suspect]
     Active Substance: RIVAROXABAN
     Indication: DEEP VEIN THROMBOSIS
     Dosage: DOSAGE VARYING FROM 15 AND 20MG
     Route: 048
     Dates: start: 2015, end: 20151213
  3. XARELTO [Suspect]
     Active Substance: RIVAROXABAN
     Indication: PERIPARTUM CARDIOMYOPATHY
     Dosage: DOSAGE VARYING FROM 15 AND 20MG
     Route: 048
     Dates: start: 2015, end: 20151016
  4. XARELTO [Suspect]
     Active Substance: RIVAROXABAN
     Indication: PERIPARTUM CARDIOMYOPATHY
     Dosage: DOSAGE VARYING FROM 15 AND 20MG
     Route: 048
     Dates: start: 2015, end: 20151213
  5. XARELTO [Suspect]
     Active Substance: RIVAROXABAN
     Indication: DEEP VEIN THROMBOSIS
     Dosage: DOSAGE VARYING FROM 15 AND 20MG
     Route: 048
     Dates: start: 2015, end: 20150901
  6. XARELTO [Suspect]
     Active Substance: RIVAROXABAN
     Indication: DEEP VEIN THROMBOSIS
     Dosage: DOSAGE VARYING FROM 15 AND 20MG
     Route: 048
     Dates: start: 20150410, end: 201506
  7. XARELTO [Suspect]
     Active Substance: RIVAROXABAN
     Indication: PERIPARTUM CARDIOMYOPATHY
     Dosage: DOSAGE VARYING FROM 15 AND 20MG
     Route: 048
     Dates: start: 2015, end: 20150901
  8. XARELTO [Suspect]
     Active Substance: RIVAROXABAN
     Indication: PERIPARTUM CARDIOMYOPATHY
     Dosage: DOSAGE VARYING FROM 15 AND 20MG
     Route: 048
     Dates: start: 20150410, end: 201506

REACTIONS (2)
  - Menometrorrhagia [Recovering/Resolving]
  - Internal haemorrhage [Unknown]

NARRATIVE: CASE EVENT DATE: 201504
